FAERS Safety Report 5713345-X (Version None)
Quarter: 2008Q2

REPORT INFORMATION
  Report Type: 
  Country: None (occurrence: None)
  Receive Date: 20080422
  Receipt Date: 20080410
  Transmission Date: 20081010
  Serious: Yes (Hospitalization, Other)
  Sender: FDA-Public Use
  Company Number: US-PFIZER INC-2008002644

PATIENT
  Sex: Female
  Weight: 73 kg

DRUGS (2)
  1. LYRICA [Suspect]
     Indication: HERPES ZOSTER
     Route: 048
     Dates: start: 20071120, end: 20071205
  2. LYRICA [Suspect]
     Indication: POST HERPETIC NEURALGIA

REACTIONS (7)
  - ABASIA [None]
  - CONVULSION [None]
  - DIPLOPIA [None]
  - DYSARTHRIA [None]
  - GENERAL PHYSICAL HEALTH DETERIORATION [None]
  - INCONTINENCE [None]
  - MENTAL STATUS CHANGES [None]
